FAERS Safety Report 5880479-9 (Version None)
Quarter: 2008Q3

REPORT INFORMATION
  Report Type: 
  Country: None (occurrence: None)
  Receive Date: 20080912
  Receipt Date: 20080603
  Transmission Date: 20090109
  Serious: No
  Sender: FDA-Public Use
  Company Number: US-ABBOTT-08P-163-0453498-00

PATIENT
  Sex: Female
  Weight: 85.352 kg

DRUGS (20)
  1. HUMIRA [Suspect]
     Indication: PSORIASIS
     Route: 058
     Dates: start: 20080506, end: 20080506
  2. HUMIRA [Suspect]
     Indication: PSORIATIC ARTHROPATHY
     Route: 058
     Dates: start: 20080514, end: 20080514
  3. HUMIRA [Suspect]
     Route: 058
  4. NAPROXEN [Concomitant]
     Indication: PSORIATIC ARTHROPATHY
     Route: 048
  5. TALCONEX [Concomitant]
     Indication: PSORIASIS
     Dosage: APPLY TO AFFECTED AREA
     Route: 061
  6. LACTULOSE [Concomitant]
     Indication: LIVER DISORDER
     Dosage: 10 MG/15CC DAILY
     Route: 048
  7. METFORMIN HCL [Concomitant]
     Indication: DIABETES MELLITUS
     Dosage: DAILY
  8. GLIPIZIDE [Concomitant]
     Indication: DIABETES MELLITUS
     Route: 048
  9. PIOGLITAZONE [Concomitant]
     Indication: DIABETES MELLITUS
     Route: 048
  10. NEOMYCIN SULFATE TAB [Concomitant]
     Indication: LIVER DISORDER
     Route: 048
  11. CILOSTUZOL [Concomitant]
     Indication: THROMBOSIS
     Dosage: DAILY
     Route: 048
  12. SPIRONOLACTONE [Concomitant]
     Indication: LIVER DISORDER
     Dosage: DAILY
     Route: 048
  13. ROPINIROLE HYDROCHLORIDE [Concomitant]
     Indication: INSOMNIA
     Dosage: AT BEDTIME
     Route: 048
  14. HYDROXYZINE HYDROCHLORIDE [Concomitant]
     Indication: DRUG USE FOR UNKNOWN INDICATION
     Route: 048
  15. TEMAZEPAM [Concomitant]
     Indication: INSOMNIA
     Dosage: AT BEDTIME
     Route: 048
  16. OMEPRAZOLE [Concomitant]
     Indication: PSORIASIS
     Route: 061
  17. ALPRAZOLAM [Concomitant]
     Indication: ANXIETY
     Route: 048
  18. TIOTROPIUM BROMIDE [Concomitant]
     Indication: ASTHMA
     Dosage: DAILY
  19. SERETIDE [Concomitant]
     Indication: ASTHMA
     Dosage: DAILY
     Route: 055
  20. TACLONEX [Concomitant]
     Indication: PRURITUS
     Dosage: APPLY TO AFFECTED AREA
     Route: 061

REACTIONS (2)
  - ACNE [None]
  - BLISTER [None]
